FAERS Safety Report 8494166-4 (Version None)
Quarter: 2012Q3

REPORT INFORMATION
  Report Type: 
  Country: None (occurrence: None)
  Receive Date: 20120709
  Receipt Date: 20120702
  Transmission Date: 20120928
  Serious: Yes (Hospitalization)
  Sender: FDA-Public Use
  Company Number: PHHY2012MX052192

PATIENT
  Sex: Female

DRUGS (3)
  1. ZOLEDRONOC ACID [Suspect]
     Indication: OSTEOPOROSIS
     Dosage: 5 MG / 100 ML, EACH YEAR
     Route: 042
     Dates: start: 20090325
  2. CALCIUM CARBONATE [Concomitant]
  3. CENTRUM [Concomitant]
     Dosage: 1 DF, QD

REACTIONS (7)
  - LIGAMENT SPRAIN [None]
  - PYREXIA [None]
  - FALL [None]
  - FEMUR FRACTURE [None]
  - JOINT DISLOCATION [None]
  - MALAISE [None]
  - INFLUENZA [None]
